APPROVED DRUG PRODUCT: SULFALAR
Active Ingredient: SULFISOXAZOLE
Strength: 500MG
Dosage Form/Route: TABLET;ORAL
Application: A084955 | Product #001
Applicant: PARKE DAVIS DIV WARNER LAMBERT CO
Approved: Approved Prior to Jan 1, 1982 | RLD: No | RS: No | Type: DISCN